FAERS Safety Report 9220284 (Version 2)
Quarter: 2013Q2

REPORT INFORMATION
  Report Type: Spontaneous
  Country: GB (occurrence: None)
  Receive Date: 20130405
  Receipt Date: 20130429
  Transmission Date: 20140414
  Serious: Yes (Life-Threatening)
  Sender: FDA-Public Use
  Company Number: AUR-APL-2013-02575

PATIENT
  Age: 43 Year
  Sex: Male

DRUGS (4)
  1. RISPERIDONE (RISPERIDONE) [Suspect]
     Indication: PSYCHOTIC DISORDER
     Route: 048
     Dates: start: 20121009, end: 20121013
  2. ARIPIPRAZOLE (ARIPIPRAZOLE) [Concomitant]
  3. DIAZEPAM (DIAZEPAM) [Concomitant]
  4. QUETIAPINE (QUETIAPINE) (QUETIAPINE) [Concomitant]

REACTIONS (5)
  - Hyperhidrosis [None]
  - Body temperature increased [None]
  - Blood creatine phosphokinase increased [None]
  - White blood cell count increased [None]
  - Neuroleptic malignant syndrome [None]
